FAERS Safety Report 26126852 (Version 1)
Quarter: 2025Q4

REPORT INFORMATION
  Report Type: Spontaneous
  Country: RU (occurrence: RU)
  Receive Date: 20251205
  Receipt Date: 20251205
  Transmission Date: 20260117
  Serious: Yes (Death)
  Sender: NOVARTIS
  Company Number: RU-002147023-NVSC2025RU186723

PATIENT
  Age: 60 Year
  Sex: Female

DRUGS (1)
  1. IPTACOPAN [Suspect]
     Active Substance: IPTACOPAN
     Indication: Paroxysmal nocturnal haemoglobinuria
     Dosage: 200 MG, BID
     Route: 065
     Dates: start: 20241129

REACTIONS (1)
  - Death [Fatal]
